FAERS Safety Report 11804959 (Version 1)
Quarter: 2015Q4

REPORT INFORMATION
  Report Type: Spontaneous
  Country: US (occurrence: US)
  Receive Date: 20151205
  Receipt Date: 20151205
  Transmission Date: 20160305
  Serious: No
  Sender: FDA-Public Use
  Company Number: US-BAUSCH-BL-2014-010838

PATIENT
  Age: 82 Year
  Sex: Female

DRUGS (1)
  1. XENAZINE [Suspect]
     Active Substance: TETRABENAZINE
     Indication: CHOREA
     Dosage: QUARTER TABLET OF THE 12.5 MG TWICE A DAY

REACTIONS (3)
  - Drug administration error [Unknown]
  - Off label use [Unknown]
  - Insomnia [Unknown]
